FAERS Safety Report 12685069 (Version 1)
Quarter: 2016Q3

REPORT INFORMATION
  Report Type: Spontaneous
  Country: IT (occurrence: IT)
  Receive Date: 20160825
  Receipt Date: 20160825
  Transmission Date: 20161109
  Serious: Yes (Other)
  Sender: FDA-Public Use
  Company Number: IT-TEVA-685515ACC

PATIENT
  Age: 78 Year
  Sex: Female

DRUGS (1)
  1. CARBOPLATINO TEVA - TEVA PHARMA B.V. (CARBOPLATIN) SOLUTION FOR INJECT [Suspect]
     Active Substance: CARBOPLATIN
     Indication: OVARIAN CANCER
     Dosage: 300 MG CYCLICAL
     Route: 042
     Dates: start: 20160720, end: 20160810

REACTIONS (6)
  - Vomiting [Unknown]
  - Hyperhidrosis [Unknown]
  - Malaise [Unknown]
  - Nausea [Unknown]
  - Hypotension [Unknown]
  - Paraesthesia [Unknown]

NARRATIVE: CASE EVENT DATE: 20160810
